FAERS Safety Report 4488672-7 (Version None)
Quarter: 2004Q4

REPORT INFORMATION
  Report Type: 
  Country: None (occurrence: None)
  Receive Date: 20041026
  Receipt Date: 20041012
  Transmission Date: 20050328
  Serious: Yes (Hospitalization)
  Sender: FDA-Public Use
  Company Number: USA040978433

PATIENT
  Age: 70 Year
  Sex: Female

DRUGS (3)
  1. FORTEO [Suspect]
  2. CORTICOSTEROID NOS [Concomitant]
  3. PAMIDRONATE DISODIUM [Concomitant]

REACTIONS (3)
  - FIBULA FRACTURE [None]
  - NAUSEA [None]
  - TIBIA FRACTURE [None]
